FAERS Safety Report 13268436 (Version 1)
Quarter: 2017Q1

REPORT INFORMATION
  Report Type: Spontaneous
  Country: US (occurrence: US)
  Receive Date: 20170224
  Receipt Date: 20170224
  Transmission Date: 20170428
  Serious: No
  Sender: FDA-Public Use
  Company Number: None

PATIENT
  Age: 48 Year
  Sex: Male

DRUGS (3)
  1. SIMPONI [Suspect]
     Active Substance: GOLIMUMAB
     Indication: RECTAL HAEMORRHAGE
  2. SIMPONI [Suspect]
     Active Substance: GOLIMUMAB
     Indication: DIARRHOEA
  3. SIMPONI [Suspect]
     Active Substance: GOLIMUMAB
     Indication: COLITIS ULCERATIVE

REACTIONS (2)
  - Immune system disorder [None]
  - Candida infection [None]

NARRATIVE: CASE EVENT DATE: 20170224
